FAERS Safety Report 13717796 (Version 2)
Quarter: 2017Q3

REPORT INFORMATION
  Report Type: Spontaneous
  Country: JP (occurrence: JP)
  Receive Date: 20170705
  Receipt Date: 20170706
  Transmission Date: 20171127
  Serious: Yes (Other)
  Sender: FDA-Public Use
  Company Number: JP-ABBVIE-17P-087-2027388-00

PATIENT
  Age: 80 Year
  Sex: Female

DRUGS (1)
  1. VIEKIRAX [Suspect]
     Active Substance: OMBITASVIR\PARITAPREVIR\RITONAVIR
     Indication: CHRONIC HEPATITIS C
     Route: 048
     Dates: start: 20170601

REACTIONS (2)
  - Hepatic function abnormal [Recovering/Resolving]
  - Guillain-Barre syndrome [Unknown]

NARRATIVE: CASE EVENT DATE: 20170620
